FAERS Safety Report 9399503 (Version 2)
Quarter: 2013Q3

REPORT INFORMATION
  Report Type: Spontaneous
  Country: US (occurrence: None)
  Receive Date: 20130709
  Receipt Date: 20130722
  Transmission Date: 20140515
  Serious: Yes (Other)
  Sender: FDA-Public Use
  Company Number: MC201300366

PATIENT
  Sex: 0

DRUGS (2)
  1. ANGIOMAX, ANGIOX (BIVALIRUDIN) INJECTION [Suspect]
     Indication: ANGIOPLASTY
     Dosage: INFUSION
     Route: 042
  2. PLAVIX [Concomitant]

REACTIONS (6)
  - Electrocardiogram ST segment elevation [None]
  - Coagulation time abnormal [None]
  - Underdose [None]
  - Off label use [None]
  - Coagulation time shortened [None]
  - Coronary artery occlusion [None]
